FAERS Safety Report 5776317-5 (Version None)
Quarter: 2008Q2

REPORT INFORMATION
  Report Type: 
  Country: None (occurrence: None)
  Receive Date: 20080618
  Receipt Date: 20080402
  Transmission Date: 20081010
  Serious: No
  Sender: FDA-Public Use
  Company Number: US-BAYER-200818925NA

PATIENT
  Age: 51 Year
  Sex: Female

DRUGS (1)
  1. YAZ [Suspect]
     Indication: GENITAL HAEMORRHAGE
     Route: 048
     Dates: start: 20080301, end: 20080401

REACTIONS (3)
  - ALOPECIA [None]
  - DEPRESSION [None]
  - NIGHT SWEATS [None]
